FAERS Safety Report 5310630-0 (Version None)
Quarter: 2007Q1

REPORT INFORMATION
  Report Type: 
  Country: None (occurrence: None)
  Receive Date: 20070201
  Receipt Date: 20061215
  Transmission Date: 20070707
  Serious: No
  Sender: FDA-Public Use
  Company Number: 259516

PATIENT

DRUGS (3)
  1. LEVEMIR [Suspect]
     Indication: DIABETES MELLITUS
     Dosage: SUBCUTANEOUS
     Route: 058
  2. NOVOLOG [Suspect]
     Indication: DIABETES MELLITUS
     Dosage: SUBCUTANEOUS
     Route: 058
  3. NOVOLOG [Suspect]
     Indication: DIABETES MELLITUS INSULIN-DEPENDENT
     Dosage: SUBCUTANEOUS
     Route: 058

REACTIONS (2)
  - PRURITUS [None]
  - RASH [None]
